FAERS Safety Report 7256867-5 (Version None)
Quarter: 2011Q1

REPORT INFORMATION
  Report Type: 
  Country: None (occurrence: None)
  Receive Date: 20110129
  Receipt Date: 20100619
  Transmission Date: 20110831
  Serious: No
  Sender: FDA-Public Use
  Company Number: US-ABBOTT-10P-163-0652542-00

PATIENT
  Age: 52 Year
  Sex: Male

DRUGS (7)
  1. RANITIDINE [Concomitant]
     Indication: GASTRIC DISORDER
  2. PREDNISONE [Concomitant]
     Indication: RHEUMATOID ARTHRITIS
  3. VICODIN [Concomitant]
     Indication: PAIN
  4. AZATHIOTERINE [Concomitant]
     Indication: RHEUMATOID ARTHRITIS
  5. HUMIRA [Suspect]
     Indication: RHEUMATOID ARTHRITIS
     Dates: start: 20080101
  6. SULFASALAZINE [Concomitant]
     Indication: RHEUMATOID ARTHRITIS
     Dosage: 2 TABS TWICE DAILY
  7. RANITIDINE [Concomitant]
     Indication: PROPHYLAXIS

REACTIONS (3)
  - ASTHENIA [None]
  - DECREASED APPETITE [None]
  - MUSCLE DISORDER [None]
